FAERS Safety Report 20776025 (Version 11)
Quarter: 2023Q2

REPORT INFORMATION
  Report Type: Report from Study
  Country: US (occurrence: US)
  Receive Date: 20220502
  Receipt Date: 20230517
  Transmission Date: 20230721
  Serious: No
  Sender: FDA-Public Use
  Company Number: US-NOVARTISTESTPH-NVSC2022US100827

PATIENT
  Sex: Female

DRUGS (4)
  1. COSENTYX [Suspect]
     Active Substance: SECUKINUMAB
     Indication: Psoriatic arthropathy
     Dosage: UNK
     Route: 065
  2. COSENTYX [Suspect]
     Active Substance: SECUKINUMAB
     Dosage: 300 MG, QMO
     Route: 065
  3. COSENTYX [Suspect]
     Active Substance: SECUKINUMAB
     Dosage: 300 MG, QMO
     Route: 058
  4. METHOTREXATE [Concomitant]
     Active Substance: METHOTREXATE
     Indication: Product used for unknown indication
     Dosage: UNK
     Route: 065

REACTIONS (17)
  - Injection site haemorrhage [Unknown]
  - Injection site bruising [Unknown]
  - Neuralgia [Unknown]
  - Pain in extremity [Unknown]
  - Dysgeusia [Unknown]
  - Alopecia [Unknown]
  - Arthralgia [Unknown]
  - Meniscus injury [Unknown]
  - Brain fog [Unknown]
  - Headache [Unknown]
  - Nervousness [Unknown]
  - Memory impairment [Unknown]
  - Injection site mass [Unknown]
  - Paraesthesia [Unknown]
  - Therapeutic product effect incomplete [Unknown]
  - Sinusitis [Unknown]
  - Urinary tract infection [Unknown]
